FAERS Safety Report 9988208 (Version 1)
Quarter: 2014Q1

REPORT INFORMATION
  Report Type: Report from Study
  Country: BR (occurrence: BR)
  Receive Date: 20140309
  Receipt Date: 20140309
  Transmission Date: 20141002
  Serious: Yes (Other)
  Sender: FDA-Public Use
  Company Number: PHHY2014BR028047

PATIENT
  Sex: Male
  Weight: 60 kg

DRUGS (5)
  1. DIOVAN [Suspect]
     Dosage: UNK UKN, UNK
     Route: 048
  2. CEBRALAT [Concomitant]
     Dosage: UNK UKN, UNK
  3. ALENIA [Concomitant]
     Dosage: UNK UKN, UNK
  4. ASPIRINA PREVENT [Concomitant]
     Dosage: UNK UKN, UNK
  5. AMINOPHYLLINE [Concomitant]
     Dosage: UNK UKN, UNK

REACTIONS (3)
  - Skin cancer [Not Recovered/Not Resolved]
  - Emphysema [Not Recovered/Not Resolved]
  - Fatigue [Not Recovered/Not Resolved]
